FAERS Safety Report 5578715-1 (Version None)
Quarter: 2007Q4

REPORT INFORMATION
  Report Type: 
  Country: None (occurrence: None)
  Receive Date: 20071227
  Receipt Date: 20070813
  Transmission Date: 20080405
  Serious: Yes (Hospitalization)
  Sender: FDA-Public Use
  Company Number: 2007EU002698

PATIENT
  Age: 43 Year
  Sex: Female

DRUGS (1)
  1. PROTOPIC [Suspect]
     Indication: CUTANEOUS LUPUS ERYTHEMATOSUS
     Dosage: %, D, TOPICAL
     Route: 061

REACTIONS (4)
  - CONDITION AGGRAVATED [None]
  - LIVER FUNCTION TEST ABNORMAL [None]
  - LUPUS NEPHRITIS [None]
  - SYSTEMIC LUPUS ERYTHEMATOSUS RASH [None]
